FAERS Safety Report 14885845 (Version 2)
Quarter: 2018Q2

REPORT INFORMATION
  Report Type: Spontaneous
  Country: FR (occurrence: FR)
  Receive Date: 20180512
  Receipt Date: 20180523
  Transmission Date: 20180711
  Serious: Yes (Death)
  Sender: FDA-Public Use
  Company Number: FR-ABBVIE-18S-056-2353079-00

PATIENT
  Age: 8 Month
  Sex: Female

DRUGS (8)
  1. KREDEX [Concomitant]
     Active Substance: CARVEDILOL
     Indication: PRODUCT USED FOR UNKNOWN INDICATION
     Dosage: 4.5 MG CAPSULE TWICE DAILY (MORNING AND NIGHT) (9 MG,1 D)
     Route: 048
  2. NOYADA [Concomitant]
     Indication: PRODUCT USED FOR UNKNOWN INDICATION
     Dosage: 25MG/5ML: 6MG (1.2ML 3 TIMES DAILY) (3.6 ML,1 D)
     Route: 048
  3. ASPEGIC [Concomitant]
     Active Substance: ASPIRIN DL-LYSINE
     Indication: PRODUCT USED FOR UNKNOWN INDICATION
     Dosage: 0.5 DOSAGE FORM,1 D
     Route: 048
  4. CAPTOPRIL. [Concomitant]
     Active Substance: CAPTOPRIL
     Indication: PRODUCT USED FOR UNKNOWN INDICATION
     Route: 048
  5. SPIRONOLACTONE. [Concomitant]
     Active Substance: SPIRONOLACTONE
     Indication: PRODUCT USED FOR UNKNOWN INDICATION
     Dosage: 10MG/ML: 15 MG (1.5ML ONCE DAILY) (15 MG,1 D)
     Route: 048
  6. ZIMINO [Suspect]
     Active Substance: LEVOSIMENDAN
     Dosage: 0.2 GAMMA/KG/MIN DURING THE SECOND HOUR (0.2 UG/KG,1 H)
     Route: 041
     Dates: start: 20180418, end: 20180418
  7. DOLIPRANE [Concomitant]
     Active Substance: ACETAMINOPHEN
     Indication: PAIN
     Dosage: 1 DOSAGE FORM,6 H
     Route: 065
  8. ZIMINO [Suspect]
     Active Substance: LEVOSIMENDAN
     Indication: VENTRICULAR DYSFUNCTION
     Dosage: DILUTED (0.1 UG/KG,1 H)
     Route: 041
     Dates: start: 20180418, end: 20180418

REACTIONS (2)
  - Cardiac arrest [Fatal]
  - Drug administered to patient of inappropriate age [Unknown]
